FAERS Safety Report 10100377 (Version 1)
Quarter: 2014Q2

REPORT INFORMATION
  Report Type: Spontaneous
  Country: US (occurrence: US)
  Receive Date: 20140423
  Receipt Date: 20140423
  Transmission Date: 20141212
  Serious: Yes (Hospitalization, Other)
  Sender: FDA-Public Use
  Company Number: US-SA-2014SA047965

PATIENT
  Sex: Male

DRUGS (1)
  1. LANTUS SOLOSTAR [Suspect]
     Indication: TYPE 2 DIABETES MELLITUS
     Dosage: DOSE- 25/25 DOSE:25 UNIT(S)
     Route: 058

REACTIONS (4)
  - Convulsion [Unknown]
  - Blood glucose increased [Unknown]
  - Malaise [Unknown]
  - Pain [Unknown]
